FAERS Safety Report 24738237 (Version 1)
Quarter: 2024Q4

REPORT INFORMATION
  Report Type: Spontaneous
  Country: DE (occurrence: DE)
  Receive Date: 20241216
  Receipt Date: 20241216
  Transmission Date: 20250114
  Serious: Yes (Other)
  Sender: SANOFI AVENTIS
  Company Number: DE-ROCHE-2229169

PATIENT
  Age: 56 Year
  Sex: Female
  Weight: 56 kg

DRUGS (8)
  1. DOCETAXEL [Suspect]
     Active Substance: DOCETAXEL
     Indication: Breast cancer
     Dosage: 152 MG, QCY
     Dates: start: 20180619
  2. DOCETAXEL [Suspect]
     Active Substance: DOCETAXEL
     Dosage: 152 MG, QCY
  3. TRASTUZUMAB [Suspect]
     Active Substance: TRASTUZUMAB
     Indication: Breast cancer
     Dosage: QCY (ON 21/AUG/2018, SHE RECEIVED LAST)
     Route: 041
     Dates: start: 20180619, end: 20180710
  4. TRASTUZUMAB [Suspect]
     Active Substance: TRASTUZUMAB
     Dosage: 336 MG, QCY
     Route: 041
     Dates: start: 20180619, end: 20180731
  5. TRASTUZUMAB [Suspect]
     Active Substance: TRASTUZUMAB
     Dosage: 336 MG, QCY
     Route: 041
  6. PERTUZUMAB [Suspect]
     Active Substance: PERTUZUMAB
     Indication: Breast cancer
     Dosage: 420 MG, QCY
     Dates: start: 20180619
  7. PERTUZUMAB [Suspect]
     Active Substance: PERTUZUMAB
     Dosage: 420 MG, QCY
     Dates: start: 20180821
  8. PERTUZUMAB [Suspect]
     Active Substance: PERTUZUMAB
     Dosage: 420 MG, QCY

REACTIONS (3)
  - Soft tissue infection [Recovering/Resolving]
  - Mastitis [Not Recovered/Not Resolved]
  - Oedema peripheral [Recovered/Resolved]

NARRATIVE: CASE EVENT DATE: 20180723
